FAERS Safety Report 5793021-8 (Version None)
Quarter: 2008Q2

REPORT INFORMATION
  Report Type: 
  Country: None (occurrence: None)
  Receive Date: 20080627
  Receipt Date: 20080624
  Transmission Date: 20081010
  Serious: Yes (Hospitalization, Other)
  Sender: FDA-Public Use
  Company Number: FR-BRISTOL-MYERS SQUIBB COMPANY-14239925

PATIENT
  Age: 87 Year
  Sex: Male

DRUGS (7)
  1. COUMADIN [Suspect]
     Indication: ARRHYTHMIA
     Dates: end: 20080529
  2. TANAKAN [Suspect]
  3. PRAVASTATIN [Concomitant]
  4. RAMIPRIL [Concomitant]
  5. FUROSEMIDE [Concomitant]
  6. LYRICA [Concomitant]
     Indication: NEURALGIA
  7. FOLIC ACID [Concomitant]
     Indication: ANAEMIA MACROCYTIC

REACTIONS (3)
  - BLOOD PRESSURE INCREASED [None]
  - CEREBRAL HAEMORRHAGE [None]
  - PROTHROMBIN TIME SHORTENED [None]
